FAERS Safety Report 6440084-2 (Version None)
Quarter: 2009Q4

REPORT INFORMATION
  Report Type: 
  Country: None (occurrence: None)
  Receive Date: 20091113
  Receipt Date: 20080917
  Transmission Date: 20100525
  Serious: No
  Sender: FDA-Public Use
  Company Number: A0749091A

PATIENT
  Age: 56 Year
  Sex: Female

DRUGS (1)
  1. COREG [Suspect]
     Indication: DRUG USE FOR UNKNOWN INDICATION

REACTIONS (1)
  - NIGHTMARE [None]
